FAERS Safety Report 7982241-X (Version None)
Quarter: 2011Q4

REPORT INFORMATION
  Report Type: 
  Country: None (occurrence: None)
  Receive Date: 20111215
  Receipt Date: 20111215
  Transmission Date: 20120403
  Serious: Yes (Life-Threatening, Hospitalization)
  Sender: FDA-Public Use
  Company Number: None

PATIENT
  Age: 24 Year
  Sex: Female
  Weight: 76.4 kg

DRUGS (6)
  1. ACETAMINOPHEN [Concomitant]
     Route: 048
  2. MESALAMINE [Concomitant]
  3. PREDNISONE [Concomitant]
     Route: 048
  4. VENOFER [Suspect]
     Indication: IRON DEFICIENCY ANAEMIA
     Dosage: UNKNOWN
     Route: 041
     Dates: start: 20110620, end: 20110620
  5. ORAL CONTRACEPTIVE [Concomitant]
     Route: 048
  6. PREDNISONE [Concomitant]
     Route: 048

REACTIONS (14)
  - OEDEMA PERIPHERAL [None]
  - VASOSPASM [None]
  - GASTROINTESTINAL HAEMORRHAGE [None]
  - DYSKINESIA [None]
  - CONVULSION [None]
  - VOMITING [None]
  - ANAPHYLACTIC REACTION [None]
  - NAUSEA [None]
  - HYPOTENSION [None]
  - LIP SWELLING [None]
  - SYNCOPE [None]
  - CROHN'S DISEASE [None]
  - FLUSHING [None]
  - HYPOAESTHESIA [None]
